FAERS Safety Report 7075023-7 (Version None)
Quarter: 2010Q4

REPORT INFORMATION
  Report Type: 
  Country: None (occurrence: None)
  Receive Date: 20101029
  Receipt Date: 20100304
  Transmission Date: 20110411
  Serious: No
  Sender: FDA-Public Use
  Company Number: US-WYE-H13484410

PATIENT
  Age: 56 Year
  Sex: Female
  Weight: 68.1 kg

DRUGS (3)
  1. ADVIL PM [Suspect]
     Indication: NASOPHARYNGITIS
     Dosage: 2 CAPLETS X 1
     Route: 048
     Dates: start: 20100203, end: 20100203
  2. ADVIL PM [Suspect]
     Indication: PAIN
  3. ALKA-SELTZER PLUS [Concomitant]

REACTIONS (2)
  - DRUG INEFFECTIVE [None]
  - PSYCHOMOTOR HYPERACTIVITY [None]
